FAERS Safety Report 6039992-6 (Version None)
Quarter: 2009Q1

REPORT INFORMATION
  Report Type: 
  Country: None (occurrence: None)
  Receive Date: 20090116
  Receipt Date: 20071128
  Transmission Date: 20090719
  Serious: No
  Sender: FDA-Public Use
  Company Number: US-BRISTOL-MYERS SQUIBB COMPANY-13976204

PATIENT
  Age: 36 Year
  Sex: Male

DRUGS (2)
  1. ABILIFY [Suspect]
     Indication: SCHIZOPHRENIA
     Dosage: DOSE INCREASED TO 20MG.
     Dates: start: 20030101
  2. ZYPREXA [Suspect]
     Indication: SCHIZOPHRENIA

REACTIONS (2)
  - PHYSICAL ASSAULT [None]
  - VOMITING [None]
